FAERS Safety Report 13227154 (Version 2)
Quarter: 2017Q1

REPORT INFORMATION
  Report Type: Other
  Country: LT (occurrence: LT)
  Receive Date: 20170213
  Receipt Date: 20170221
  Transmission Date: 20170428
  Serious: Yes (Other)
  Sender: FDA-Public Use
  Company Number: LT-BAUSCH-BL-2017-002737

PATIENT

DRUGS (1)
  1. SALICYLIC ACID. [Suspect]
     Active Substance: SALICYLIC ACID
     Indication: PSORIASIS
     Dosage: 2-5 PERCENT
     Route: 065

REACTIONS (7)
  - Liver injury [Unknown]
  - Oral pain [Unknown]
  - Headache [Unknown]
  - Nervous system disorder [Unknown]
  - Renal injury [Unknown]
  - Skin irritation [Unknown]
  - Tinnitus [Unknown]
